FAERS Safety Report 15678487 (Version 1)
Quarter: 2018Q4

REPORT INFORMATION
  Report Type: Spontaneous
  Country: US (occurrence: US)
  Receive Date: 20181130
  Receipt Date: 20181130
  Transmission Date: 20190205
  Serious: Yes (Disabling)
  Sender: FDA-Public Use
  Company Number: None

PATIENT
  Age: 60 Year
  Sex: Female
  Weight: 78.75 kg

DRUGS (1)
  1. FARXIGA [Suspect]
     Active Substance: DAPAGLIFLOZIN PROPANEDIOL
     Indication: GLYCOSYLATED HAEMOGLOBIN INCREASED
     Dosage: ?          QUANTITY:1 TABLET(S);?
     Route: 048
     Dates: start: 20160101, end: 20180514

REACTIONS (7)
  - Hepatic cyst [None]
  - Urinary tract infection [None]
  - Blood urine present [None]
  - Renal cyst [None]
  - Transitional cell carcinoma [None]
  - Weight decreased [None]
  - Escherichia infection [None]

NARRATIVE: CASE EVENT DATE: 20180503
